FAERS Safety Report 6018747-2 (Version None)
Quarter: 2008Q4

REPORT INFORMATION
  Report Type: 
  Country: None (occurrence: None)
  Receive Date: 20081222
  Receipt Date: 20081210
  Transmission Date: 20090506
  Serious: Yes (Hospitalization)
  Sender: FDA-Public Use
  Company Number: US025165

PATIENT
  Age: 37 Year
  Sex: Male
  Weight: 63.5036 kg

DRUGS (10)
  1. PROVIGIL [Suspect]
     Indication: HYPERSOMNIA
     Dosage: 200 MG QD ORAL
     Route: 048
     Dates: start: 20080901, end: 20081109
  2. MODA-PRO [Concomitant]
  3. RITALIN [Concomitant]
  4. CLONAZEPAM [Concomitant]
  5. LITHIUM [Concomitant]
  6. DEPAKOTE [Concomitant]
  7. ABILIFY [Concomitant]
  8. SEROQUEL [Concomitant]
  9. LAMICTAL [Concomitant]
  10. RITALIN [Concomitant]

REACTIONS (7)
  - ASTHENIA [None]
  - DEPENDENCE [None]
  - DRUG EFFECT DECREASED [None]
  - DRUG INEFFECTIVE [None]
  - INTENTIONAL DRUG MISUSE [None]
  - SOMNOLENCE [None]
  - WRONG TECHNIQUE IN DRUG USAGE PROCESS [None]
